FAERS Safety Report 10029551 (Version 1)
Quarter: 2014Q1

REPORT INFORMATION
  Report Type: Spontaneous
  Country: US (occurrence: None)
  Receive Date: 20140320
  Receipt Date: 20140320
  Transmission Date: 20141002
  Serious: Yes (Other)
  Sender: FDA-Public Use
  Company Number: None

PATIENT
  Age: 33 Year
  Sex: Female
  Weight: 113.4 kg

DRUGS (1)
  1. PARAGUARD [Suspect]
     Indication: CONTRACEPTION
     Dates: start: 20121015

REACTIONS (3)
  - Back pain [None]
  - Arthralgia [None]
  - Abdominal distension [None]
